FAERS Safety Report 23673234 (Version 1)
Quarter: 2024Q1

REPORT INFORMATION
  Report Type: Spontaneous
  Country: US (occurrence: US)
  Receive Date: 20240326
  Receipt Date: 20240326
  Transmission Date: 20240409
  Serious: Yes (Other)
  Sender: FDA-Public Use
  Company Number: US-MYLANLABS-2024M1027877

PATIENT
  Age: 78 Year
  Sex: Male

DRUGS (6)
  1. GEMCITABINE [Suspect]
     Active Substance: GEMCITABINE
     Indication: Gallbladder cancer metastatic
     Dosage: 1000 MILLIGRAM/SQ. METER, CYCLE; ON DAY 1 AND 8 ON  A 21-DAY CYCLE.
     Route: 042
     Dates: start: 20161006, end: 20161202
  2. CISPLATIN [Suspect]
     Active Substance: CISPLATIN
     Indication: Gallbladder cancer metastatic
     Dosage: 60 MILLIGRAM/SQ. METER, CYCLE; ON DAY 1 ON  A 21-DAY CYCLE.
     Route: 042
     Dates: start: 20161006, end: 20161202
  3. FLUOROURACIL [Suspect]
     Active Substance: FLUOROURACIL
     Indication: Gallbladder cancer metastatic
     Dosage: 400 MILLIGRAM/SQ. METER, QD; ON DAY 1; INTRAVENOUS BOLUS
     Route: 042
     Dates: start: 20161216
  4. FLUOROURACIL [Suspect]
     Active Substance: FLUOROURACIL
     Dosage: 1200 MILLIGRAM/SQ. METER, QD; FOR 2 DAYS CONTINUOUS IV INFUSION
     Route: 042
     Dates: start: 201612, end: 20180521
  5. LEUCOVORIN CALCIUM [Suspect]
     Active Substance: LEUCOVORIN CALCIUM
     Indication: Gallbladder cancer metastatic
     Dosage: 400 MILLIGRAM/SQ. METER, QD; ON DAY 1
     Route: 042
     Dates: start: 20161216, end: 20180521
  6. OXALIPLATIN [Suspect]
     Active Substance: OXALIPLATIN
     Indication: Gallbladder cancer metastatic
     Dosage: 85 MILLIGRAM/SQ. METER, QD; ON DAY 1
     Route: 042
     Dates: start: 20161216, end: 20180521

REACTIONS (2)
  - Disease progression [Unknown]
  - Drug ineffective [Unknown]
